FAERS Safety Report 18533663 (Version 1)
Quarter: 2020Q4

REPORT INFORMATION
  Report Type: Spontaneous
  Country: CN (occurrence: CN)
  Receive Date: 20201123
  Receipt Date: 20201123
  Transmission Date: 20210114
  Serious: Yes (Other)
  Sender: FDA-Public Use
  Company Number: CN-PFIZER INC-2020453716

PATIENT
  Age: 17 Year
  Sex: Female
  Weight: 45 kg

DRUGS (2)
  1. METHOTREXATE. [Suspect]
     Active Substance: METHOTREXATE
     Indication: ECTOPIC PREGNANCY
     Dosage: 20 MG, 1X/DAY
     Route: 030
     Dates: start: 20201007, end: 20201011
  2. ZI YUN [Concomitant]
     Indication: ECTOPIC PREGNANCY
     Dosage: 1 DF, 1X/DAY
     Route: 048
     Dates: start: 20201007, end: 20201016

REACTIONS (6)
  - Pruritus [Recovered/Resolved]
  - Off label use [Unknown]
  - Product use in unapproved indication [Unknown]
  - Rash maculo-papular [Recovered/Resolved]
  - Dermatitis allergic [Recovered/Resolved]
  - Drug hypersensitivity [Recovered/Resolved]

NARRATIVE: CASE EVENT DATE: 20201009
